FAERS Safety Report 8981476 (Version 3)
Quarter: 2014Q3

REPORT INFORMATION
  Report Type: Spontaneous
  Country: US (occurrence: US)
  Receive Date: 20121221
  Receipt Date: 20140821
  Transmission Date: 20150326
  Serious: Yes (Death, Hospitalization, Other)
  Sender: FDA-Public Use
  Company Number: US-ROXANE LABORATORIES, INC.-2012-RO-02607RO

PATIENT
  Age: 69 Year
  Weight: 80 kg

DRUGS (3)
  1. PREDNISONE. [Suspect]
     Active Substance: PREDNISONE
     Indication: PLASMA CELL MYELOMA
     Route: 048
     Dates: start: 20101018, end: 20101021
  2. VELCADE [Suspect]
     Active Substance: BORTEZOMIB
     Indication: PLASMA CELL MYELOMA
     Route: 042
     Dates: start: 20101018, end: 20101028
  3. MELPHALAN [Suspect]
     Active Substance: MELPHALAN
     Indication: PLASMA CELL MYELOMA
     Route: 048
     Dates: start: 20101019, end: 20101022

REACTIONS (7)
  - Shock [Unknown]
  - Gastrointestinal haemorrhage [Unknown]
  - Staphylococcal bacteraemia [Unknown]
  - Haemorrhoids [Unknown]
  - Respiratory failure [Fatal]
  - Staphylococcal sepsis [Unknown]
  - Intervertebral discitis [Unknown]

NARRATIVE: CASE EVENT DATE: 20101029
